FAERS Safety Report 8448651-1 (Version None)
Quarter: 2012Q2

REPORT INFORMATION
  Report Type: 
  Country: None (occurrence: None)
  Receive Date: 20120619
  Receipt Date: 20120605
  Transmission Date: 20120825
  Serious: No
  Sender: FDA-Public Use
  Company Number: US-ASTRAZENECA-2012SE37827

PATIENT
  Age: 52 Year
  Sex: Female
  Weight: 77.1 kg

DRUGS (6)
  1. HYDROCODONE [Concomitant]
     Indication: ARTHRALGIA
  2. NEXIUM [Suspect]
     Indication: BARRETT'S OESOPHAGUS
     Route: 048
  3. PRAVASTATIN [Concomitant]
     Indication: BLOOD CHOLESTEROL INCREASED
  4. SEROQUEL [Suspect]
     Indication: SLEEP DISORDER
     Route: 048
  5. MECLIZINE [Concomitant]
  6. XANAX [Concomitant]
     Indication: ANXIETY

REACTIONS (4)
  - OFF LABEL USE [None]
  - OESOPHAGEAL PAIN [None]
  - INTENTIONAL DRUG MISUSE [None]
  - REGURGITATION [None]
